FAERS Safety Report 11465163 (Version 2)
Quarter: 2015Q4

REPORT INFORMATION
  Report Type: Report from Study
  Country: DE (occurrence: DE)
  Receive Date: 20150907
  Receipt Date: 20151116
  Transmission Date: 20160304
  Serious: Yes (Hospitalization, Other)
  Sender: FDA-Public Use
  Company Number: DE-ROCHE-1630617

PATIENT
  Age: 83 Year
  Sex: Male
  Weight: 71 kg

DRUGS (2)
  1. ESBRIET [Suspect]
     Active Substance: PIRFENIDONE
     Indication: IDIOPATHIC PULMONARY FIBROSIS
     Dosage: 6 CAPSULES PER DAY.
     Route: 048
     Dates: start: 20140107
  2. INSULIN [Concomitant]
     Active Substance: INSULIN NOS
     Indication: TYPE 2 DIABETES MELLITUS
     Route: 058
     Dates: start: 2004

REACTIONS (2)
  - Pneumonia [Recovering/Resolving]
  - Lung neoplasm [Unknown]

NARRATIVE: CASE EVENT DATE: 20150821
